FAERS Safety Report 9319627 (Version 9)
Quarter: 2017Q2

REPORT INFORMATION
  Report Type: Spontaneous
  Country: US (occurrence: US)
  Receive Date: 20130530
  Receipt Date: 20170525
  Transmission Date: 20170830
  Serious: Yes (Hospitalization, Other)
  Sender: FDA-Public Use
  Company Number: US-GLAXOSMITHKLINE-A1015837A

PATIENT
  Sex: Female

DRUGS (12)
  1. COUMADIN [Suspect]
     Active Substance: WARFARIN SODIUM
     Indication: PRODUCT USED FOR UNKNOWN INDICATION
  2. FLOLAN [Suspect]
     Active Substance: EPOPROSTENOL SODIUM
     Dosage: UNK
     Dates: start: 19990503
  3. ADCIRCA [Suspect]
     Active Substance: TADALAFIL
     Indication: PRODUCT USED FOR UNKNOWN INDICATION
  4. LETAIRIS [Suspect]
     Active Substance: AMBRISENTAN
     Indication: PRODUCT USED FOR UNKNOWN INDICATION
  5. FLOLAN [Suspect]
     Active Substance: EPOPROSTENOL SODIUM
     Dosage: 21 NG/KG/MIN, CO
     Route: 042
  6. FLOLAN [Suspect]
     Active Substance: EPOPROSTENOL SODIUM
     Indication: PULMONARY ARTERIAL HYPERTENSION
     Dosage: 21 NG/KG/MIN CONTINUOUSLY, 1.5 MG VIAL STRENGTH, 45,000 NG/ML CONCENTRATION
     Route: 042
     Dates: start: 19980106
  7. FLOLAN [Suspect]
     Active Substance: EPOPROSTENOL SODIUM
     Dosage: 21 NG/KG/MIN
  8. FLOLAN [Suspect]
     Active Substance: EPOPROSTENOL SODIUM
     Indication: PULMONARY ARTERIAL HYPERTENSION
  9. FLOLAN [Suspect]
     Active Substance: EPOPROSTENOL SODIUM
     Dosage: UNK
     Dates: start: 19990503
  10. FLOLAN [Suspect]
     Active Substance: EPOPROSTENOL SODIUM
     Dosage: 21 NG/KG/MIN
     Route: 042
  11. FLOLAN [Suspect]
     Active Substance: EPOPROSTENOL SODIUM
     Dosage: UNK
  12. FLOLAN [Suspect]
     Active Substance: EPOPROSTENOL SODIUM
     Dosage: 21 NG/KG/MIN CONTINUOUS
     Route: 042

REACTIONS (20)
  - Tachycardia [Unknown]
  - Catheter site discharge [Unknown]
  - Application site pain [Unknown]
  - Pain [Recovering/Resolving]
  - Drug dose omission [Unknown]
  - Surgery [Unknown]
  - Anaemia [Unknown]
  - Application site reaction [Unknown]
  - Fatigue [Unknown]
  - Upper respiratory tract infection [Unknown]
  - Application site erythema [Unknown]
  - Thyroidectomy [Unknown]
  - Ear infection [Unknown]
  - Device issue [Unknown]
  - Flushing [Unknown]
  - Asthenia [Unknown]
  - Erythema [Recovering/Resolving]
  - Haemoglobin decreased [Unknown]
  - Asthma [Unknown]
  - Anxiety [Unknown]
